FAERS Safety Report 8337886-4 (Version None)
Quarter: 2012Q2

REPORT INFORMATION
  Report Type: 
  Country: None (occurrence: None)
  Receive Date: 20120504
  Receipt Date: 20120424
  Transmission Date: 20120825
  Serious: Yes (Other)
  Sender: FDA-Public Use
  Company Number: BE-ELI_LILLY_AND_COMPANY-BE201203000061

PATIENT
  Sex: Female

DRUGS (3)
  1. FORTEO [Suspect]
     Dosage: UNK
     Dates: start: 20111130, end: 20120401
  2. FLECAINIDE ACETATE [Concomitant]
     Indication: CARDIAC DISORDER
     Dosage: 200 MG, UNK
  3. SERENASE                           /00027401/ [Concomitant]
     Indication: SLEEP DISORDER
     Dosage: 2.5 MG, UNK

REACTIONS (5)
  - WEIGHT DECREASED [None]
  - CEREBROVASCULAR ACCIDENT [None]
  - INSOMNIA [None]
  - ARTHRALGIA [None]
  - CONSTIPATION [None]
